FAERS Safety Report 10597919 (Version 1)
Quarter: 2014Q4

REPORT INFORMATION
  Report Type: Spontaneous
  Country: US (occurrence: US)
  Receive Date: 20141121
  Receipt Date: 20141121
  Transmission Date: 20150529
  Serious: Yes (Hospitalization)
  Sender: FDA-Public Use
  Company Number: US-JNJFOC-20141109647

PATIENT
  Sex: Female

DRUGS (1)
  1. XARELTO [Suspect]
     Active Substance: RIVAROXABAN
     Indication: THROMBOSIS PROPHYLAXIS
     Route: 048
     Dates: start: 201308, end: 201308

REACTIONS (4)
  - Pulmonary embolism [Unknown]
  - Adverse event [Unknown]
  - Pneumothorax [Unknown]
  - Vomiting [Unknown]

NARRATIVE: CASE EVENT DATE: 201308
